FAERS Safety Report 13678823 (Version 2)
Quarter: 2017Q2

REPORT INFORMATION
  Report Type: Report from Study
  Country: US (occurrence: US)
  Receive Date: 20170622
  Receipt Date: 20170623
  Transmission Date: 20170830
  Serious: Yes (Other)
  Sender: FDA-Public Use
  Company Number: US-JNJFOC-20170417533

PATIENT
  Sex: Male

DRUGS (15)
  1. FELODIPINE. [Concomitant]
     Active Substance: FELODIPINE
  2. BACTRIM [Concomitant]
     Active Substance: SULFAMETHOXAZOLE\TRIMETHOPRIM
  3. IMBRUVICA [Suspect]
     Active Substance: IBRUTINIB
     Indication: CHRONIC LYMPHOCYTIC LEUKAEMIA
     Route: 048
     Dates: start: 20161216
  4. HCTZ [Concomitant]
     Active Substance: HYDROCHLOROTHIAZIDE
  5. COZAAR [Concomitant]
     Active Substance: LOSARTAN POTASSIUM
  6. COQ10 [Concomitant]
     Active Substance: UBIDECARENONE
  7. NASONEX [Concomitant]
     Active Substance: MOMETASONE FUROATE
  8. POTASSIUM [Concomitant]
     Active Substance: POTASSIUM
  9. PRILOSEC [Concomitant]
     Active Substance: OMEPRAZOLE MAGNESIUM
  10. PROSCAR [Concomitant]
     Active Substance: FINASTERIDE
  11. VITAMIN D [Concomitant]
     Active Substance: CHOLECALCIFEROL
  12. FINASTERIDE. [Concomitant]
     Active Substance: FINASTERIDE
  13. ZOCOR [Concomitant]
     Active Substance: SIMVASTATIN
  14. DOXAZOSIN [Concomitant]
     Active Substance: DOXAZOSIN\DOXAZOSIN MESYLATE
  15. VITAMIN B12 [Concomitant]
     Active Substance: CYANOCOBALAMIN

REACTIONS (3)
  - Spinal compression fracture [Unknown]
  - Atrial fibrillation [Unknown]
  - Arthritis [Unknown]
